FAERS Safety Report 6547037-4 (Version None)
Quarter: 2010Q1

REPORT INFORMATION
  Report Type: 
  Country: None (occurrence: None)
  Receive Date: 20100122
  Receipt Date: 20100119
  Transmission Date: 20100710
  Serious: Yes (Hospitalization)
  Sender: FDA-Public Use
  Company Number: MX-BRISTOL-MYERS SQUIBB COMPANY-14593123

PATIENT
  Age: 37 Year
  Sex: Female

DRUGS (4)
  1. ABATACEPT [Suspect]
     Indication: COLITIS ULCERATIVE
     Dosage: 1 DOSAGE FORM = 3MG/KG OR 10MG/KG
     Route: 042
     Dates: start: 20090304, end: 20090407
  2. BUTYLHYOSCINE [Concomitant]
     Route: 048
     Dates: start: 20090401
  3. MESALAZINE [Concomitant]
     Route: 048
     Dates: start: 20090121
  4. DICYCLOVERINE HCL [Concomitant]
     Route: 048
     Dates: start: 20090404

REACTIONS (2)
  - ANAEMIA [None]
  - DIARRHOEA HAEMORRHAGIC [None]
